FAERS Safety Report 9830371 (Version 3)
Quarter: 2014Q1

REPORT INFORMATION
  Report Type: Report from Study
  Country: US (occurrence: US)
  Receive Date: 20140120
  Receipt Date: 20140306
  Transmission Date: 20141002
  Serious: Yes (Hospitalization)
  Sender: FDA-Public Use
  Company Number: US-JNJFOC-20140105230

PATIENT
  Sex: Male
  Weight: 104.33 kg

DRUGS (6)
  1. STELARA [Suspect]
     Indication: PSORIASIS
     Route: 058
  2. STELARA [Suspect]
     Indication: PSORIASIS
     Route: 058
     Dates: start: 2010, end: 2011
  3. ATIVAN [Concomitant]
     Indication: FEELING OF RELAXATION
     Dosage: ONCE TO TWICE DAILY
     Route: 048
  4. PROVENTIL [Concomitant]
     Indication: ASTHMA
     Dosage: AS NEEDED
     Route: 055
  5. FLOMAX [Concomitant]
     Indication: ASTHMA
     Dosage: 1 PUFF IN THE MORNING
     Route: 055
  6. PAXIL [Concomitant]
     Indication: ANXIETY
     Route: 048

REACTIONS (4)
  - Pneumonia [Recovered/Resolved]
  - Bacterial infection [Recovered/Resolved]
  - Sinusitis [Recovered/Resolved]
  - Psoriasis [Not Recovered/Not Resolved]
